FAERS Safety Report 21199553 (Version 5)
Quarter: 2023Q2

REPORT INFORMATION
  Report Type: Report from Study
  Country: US (occurrence: US)
  Receive Date: 20220811
  Receipt Date: 20230605
  Transmission Date: 20230721
  Serious: Yes (Hospitalization, Other)
  Sender: FDA-Public Use
  Company Number: US-BAUSCH-BL-2022-019539

PATIENT
  Age: 47 Year
  Sex: Female
  Weight: 57 kg

DRUGS (30)
  1. RIBAVIRIN [Suspect]
     Active Substance: RIBAVIRIN
     Indication: Hepatitis E
     Route: 042
     Dates: start: 20220714, end: 20220730
  2. RIBAVIRIN [Suspect]
     Active Substance: RIBAVIRIN
     Indication: Encephalitis
     Route: 042
     Dates: start: 20220731, end: 20220803
  3. RIBAVIRIN [Suspect]
     Active Substance: RIBAVIRIN
     Dosage: 1 WEEK ON AND 1 WEEK OFF,?COMPLETED WEEK 5 ON 06/OCT/22. STARTING WEEK 6 OF TREATMENT 13/OCT/22
     Route: 042
  4. RIBAVIRIN [Suspect]
     Active Substance: RIBAVIRIN
     Route: 042
     Dates: start: 20220823, end: 20220830
  5. RIBAVIRIN [Suspect]
     Active Substance: RIBAVIRIN
     Route: 042
     Dates: start: 20220908, end: 20220913
  6. RIBAVIRIN [Suspect]
     Active Substance: RIBAVIRIN
     Route: 042
     Dates: start: 20220929, end: 20221006
  7. RIBAVIRIN [Suspect]
     Active Substance: RIBAVIRIN
     Route: 042
     Dates: start: 20221019, end: 20221026
  8. RIBAVIRIN [Suspect]
     Active Substance: RIBAVIRIN
     Route: 042
     Dates: start: 20221103, end: 20221110
  9. RIBAVIRIN [Suspect]
     Active Substance: RIBAVIRIN
     Route: 042
     Dates: start: 20221128, end: 20221204
  10. RIBAVIRIN [Suspect]
     Active Substance: RIBAVIRIN
     Route: 042
     Dates: start: 20230106, end: 20230113
  11. RIBAVIRIN [Suspect]
     Active Substance: RIBAVIRIN
     Route: 042
     Dates: start: 20230120, end: 20230127
  12. RIBAVIRIN [Suspect]
     Active Substance: RIBAVIRIN
     Route: 042
     Dates: start: 20230203, end: 20230213
  13. RIBAVIRIN [Suspect]
     Active Substance: RIBAVIRIN
     Route: 042
     Dates: start: 20230222, end: 20230301
  14. RIBAVIRIN [Suspect]
     Active Substance: RIBAVIRIN
     Route: 042
     Dates: start: 20230315, end: 20230322
  15. RIBAVIRIN [Suspect]
     Active Substance: RIBAVIRIN
     Route: 042
     Dates: start: 20230411, end: 20230418
  16. RIBAVIRIN [Suspect]
     Active Substance: RIBAVIRIN
     Route: 042
     Dates: start: 20230426, end: 20230503
  17. PREDNISONE [Concomitant]
     Active Substance: PREDNISONE
     Indication: Product used for unknown indication
     Route: 065
  18. PREDNISONE [Concomitant]
     Active Substance: PREDNISONE
     Route: 065
  19. ZOLOFT [Concomitant]
     Active Substance: SERTRALINE HYDROCHLORIDE
     Indication: Product used for unknown indication
     Route: 065
  20. FLOMAX [Concomitant]
     Active Substance: TAMSULOSIN HYDROCHLORIDE
     Indication: Product used for unknown indication
     Route: 065
  21. OMEPRAZOLE [Concomitant]
     Active Substance: OMEPRAZOLE
     Indication: Product used for unknown indication
     Route: 065
  22. THIAMINE [Concomitant]
     Active Substance: THIAMINE
     Indication: Product used for unknown indication
     Route: 065
  23. INSULIN NOS [Concomitant]
     Active Substance: INSULIN NOS
     Indication: Product used for unknown indication
     Route: 065
  24. VITAMIN B12 [Concomitant]
     Active Substance: CYANOCOBALAMIN
     Indication: Product used for unknown indication
     Route: 065
  25. VITAMIN D3 [Concomitant]
     Active Substance: CHOLECALCIFEROL
     Indication: Product used for unknown indication
     Route: 065
  26. DEFERASIROX [Concomitant]
     Active Substance: DEFERASIROX
     Indication: Product used for unknown indication
     Route: 065
  27. ACYCLOVIR [Concomitant]
     Active Substance: ACYCLOVIR
     Indication: Product used for unknown indication
     Route: 065
  28. ESTRACE [Concomitant]
     Active Substance: ESTRADIOL
     Indication: Product used for unknown indication
     Route: 065
  29. DEXAMETHASONE [Concomitant]
     Active Substance: DEXAMETHASONE
     Indication: Immunosuppression
     Dates: start: 202206
  30. VITAMINS NOS [Concomitant]
     Active Substance: VITAMINS
     Indication: Immunosuppression
     Dates: start: 202206

REACTIONS (7)
  - Appendicitis [Recovered/Resolved]
  - Pancytopenia [Unknown]
  - Febrile neutropenia [Recovered/Resolved]
  - Klebsiella bacteraemia [Recovered/Resolved]
  - Confusional state [Not Recovered/Not Resolved]
  - Iron overload [Not Recovered/Not Resolved]
  - Anaemia [Not Recovered/Not Resolved]

NARRATIVE: CASE EVENT DATE: 20220101
